FAERS Safety Report 8666897 (Version 3)
Quarter: 2013Q4

REPORT INFORMATION
  Report Type: Report from Study
  Country: JP (occurrence: JP)
  Receive Date: 20120716
  Receipt Date: 20131031
  Transmission Date: 20140711
  Serious: Yes (Hospitalization)
  Sender: FDA-Public Use
  Company Number: JP-009507513-1207JPN004338

PATIENT
  Age: 80 Year
  Sex: Female

DRUGS (6)
  1. AROGLYCEM [Suspect]
     Indication: HYPOGLYCAEMIA
     Dosage: 25 MG, TID
     Route: 048
     Dates: start: 20111207, end: 20111208
  2. AROGLYCEM [Suspect]
     Dosage: 75 MG, TID
     Route: 048
     Dates: start: 20111208, end: 20111208
  3. AROGLYCEM [Suspect]
     Dosage: 100 MG: MORNING, 75 MG: NOON AND EVENING
     Route: 048
     Dates: start: 20111209, end: 20111220
  4. AMLODIPINE [Concomitant]
     Indication: HYPERTENSION
     Dosage: THE DIVIDED DOSE FREQUENCY IS UNCERTAIN
     Route: 048
  5. ALFACALCIDOL [Concomitant]
     Indication: OSTEOPOROSIS
     Dosage: 1 MICROGRAM, QD
     Route: 048
  6. ACTONEL [Concomitant]
     Indication: OSTEOPOROSIS
     Dosage: 1 WEEK
     Route: 048

REACTIONS (3)
  - Pancytopenia [Recovered/Resolved]
  - Hypokalaemia [Recovered/Resolved]
  - Hypocalcaemia [Recovered/Resolved]
